FAERS Safety Report 6356647-9 (Version None)
Quarter: 2009Q3

REPORT INFORMATION
  Report Type: 
  Country: None (occurrence: None)
  Receive Date: 20090914
  Receipt Date: 20090914
  Transmission Date: 20100115
  Serious: Yes (Other)
  Sender: FDA-Public Use
  Company Number: None

PATIENT
  Sex: Female
  Weight: 23 kg

DRUGS (2)
  1. SINGULAIR [Suspect]
     Indication: COUGH
     Dosage: SINGULAIR 4MG ONCE DAILY ORAL
     Route: 048
     Dates: start: 20060101, end: 20090101
  2. SINGULAIR [Suspect]
     Indication: HYPERSENSITIVITY
     Dosage: SINGULAIR 4MG ONCE DAILY ORAL
     Route: 048
     Dates: start: 20060101, end: 20090101

REACTIONS (3)
  - ABNORMAL BEHAVIOUR [None]
  - AGGRESSION [None]
  - MOOD ALTERED [None]
